FAERS Safety Report 6293847-0 (Version None)
Quarter: 2009Q3

REPORT INFORMATION
  Report Type: 
  Country: None (occurrence: None)
  Receive Date: 20090731
  Receipt Date: 20090731
  Transmission Date: 20100115
  Serious: No
  Sender: FDA-Public Use
  Company Number: None

PATIENT
  Sex: Male
  Weight: 76.2043 kg

DRUGS (2)
  1. ARICEPT [Suspect]
     Indication: LEARNING DISORDER
     Dosage: ARICEPT (DONEPEZIL) VS 10 MG PLACEBO; STARTED MAY 5, 2009 @ 5MG/DAY; INCREASED TO 10MG/DAY JUNE 2
     Dates: start: 20090505
  2. ARICEPT [Suspect]
     Indication: MEMORY IMPAIRMENT
     Dosage: ARICEPT (DONEPEZIL) VS 10 MG PLACEBO; STARTED MAY 5, 2009 @ 5MG/DAY; INCREASED TO 10MG/DAY JUNE 2
     Dates: start: 20090505

REACTIONS (3)
  - ACTIVITIES OF DAILY LIVING IMPAIRED [None]
  - HEADACHE [None]
  - INSOMNIA [None]
